FAERS Safety Report 5821589-1 (Version None)
Quarter: 2008Q3

REPORT INFORMATION
  Report Type: 
  Country: None (occurrence: None)
  Receive Date: 20080722
  Receipt Date: 20080708
  Transmission Date: 20090109
  Serious: Yes (Death)
  Sender: FDA-Public Use
  Company Number: 2008018188

PATIENT
  Age: 65 Year
  Sex: Male

DRUGS (9)
  1. DIPHENHYDRAMINE HCL [Suspect]
     Dosage: ORAL
     Route: 048
  2. DEXTROMETHORPHAN HYDROBROMIDE [Suspect]
     Dosage: ORAL
     Route: 048
  3. PSEUDOEPHEDRINE HCL [Suspect]
     Dosage: ORAL
     Route: 048
  4. EPHEDRINE SUL CAP [Suspect]
     Dosage: ORAL
     Route: 048
  5. DOXYLAMINE SUCCINATE [Suspect]
  6. CHLORPHENIRAMINE MALEATE [Suspect]
     Dosage: ORAL
     Route: 048
  7. PHENYLPROPANOLAMINE HCL [Suspect]
     Dosage: ORAL
     Route: 048
  8. ACETAMINOPHEN [Suspect]
     Dosage: ORAL
     Route: 048
  9. NYQUIL (DEXTROMETHORPHAN HYDROBROMIDE, DOXYYLAMINE SUCCINATE, EPHEDRIN [Suspect]
     Dosage: ORAL
     Route: 048

REACTIONS (1)
  - ACCIDENT [None]
